FAERS Safety Report 10258017 (Version 1)
Quarter: 2014Q2

REPORT INFORMATION
  Report Type: Spontaneous
  Country: US (occurrence: US)
  Receive Date: 20140625
  Receipt Date: 20140625
  Transmission Date: 20141212
  Serious: No
  Sender: FDA-Public Use
  Company Number: US-PFIZER INC-2014170880

PATIENT
  Age: 78 Year
  Sex: Male
  Weight: 68.93 kg

DRUGS (5)
  1. PANTOPRAZOLE [Suspect]
     Dosage: 40 MG, 1X/DAY
     Route: 048
     Dates: start: 20120530, end: 201404
  2. ASPIRIN [Concomitant]
     Indication: MYOCARDIAL INFARCTION
     Dosage: UNK
  3. CLOPIDOGREL [Concomitant]
     Indication: MYOCARDIAL INFARCTION
     Dosage: 75 MG, UNK
  4. ATORVASTATIN [Concomitant]
     Indication: MYOCARDIAL INFARCTION
     Dosage: 20 MG, UNK
  5. CARVEDILOL [Concomitant]
     Indication: MYOCARDIAL INFARCTION
     Dosage: 3.125 MG, UNK

REACTIONS (3)
  - Dizziness [Recovered/Resolved]
  - Dizziness [Recovered/Resolved]
  - Vertigo [Recovered/Resolved]
